FAERS Safety Report 11893723 (Version 2)
Quarter: 2016Q2

REPORT INFORMATION
  Report Type: Spontaneous
  Country: IT (occurrence: IT)
  Receive Date: 20160106
  Receipt Date: 20160421
  Transmission Date: 20160815
  Serious: Yes (Disabling)
  Sender: FDA-Public Use
  Company Number: IT-009507513-1510ITA008036

PATIENT
  Age: 68 Year
  Sex: Female

DRUGS (2)
  1. URBASON [Concomitant]
     Active Substance: METHYLPREDNISOLONE
     Indication: RHEUMATOID ARTHRITIS
     Dosage: 12 MG, UNK
     Route: 048
     Dates: start: 19960101
  2. ALENDROS? 10 MG COMPRESSE [Suspect]
     Active Substance: ALENDRONATE SODIUM
     Indication: RHEUMATOID ARTHRITIS
     Dosage: UNK
     Route: 065
     Dates: start: 20020101, end: 20110101

REACTIONS (2)
  - Osteonecrosis [Unknown]
  - Oral cavity fistula [Unknown]

NARRATIVE: CASE EVENT DATE: 20140331
